FAERS Safety Report 12792640 (Version 1)
Quarter: 2016Q3

REPORT INFORMATION
  Report Type: Spontaneous
  Country: US (occurrence: US)
  Receive Date: 20160928
  Receipt Date: 20160928
  Transmission Date: 20161109
  Serious: Yes (Life-Threatening, Hospitalization)
  Sender: FDA-Public Use
  Company Number: None

PATIENT
  Age: 65 Year
  Sex: Female
  Weight: 68.04 kg

DRUGS (9)
  1. BREO ELLIPTA [Concomitant]
     Active Substance: FLUTICASONE FUROATE\VILANTEROL TRIFENATATE
  2. TRAMADOL. [Concomitant]
     Active Substance: TRAMADOL
  3. PROTONIX [Concomitant]
     Active Substance: PANTOPRAZOLE SODIUM
  4. ALBUTEROL. [Concomitant]
     Active Substance: ALBUTEROL
  5. HUMIRA [Suspect]
     Active Substance: ADALIMUMAB
     Indication: CHRONIC DISEASE
     Dosage: HUMIRA PEN ADALIMUMAB 1 INJECTION EVERY OTHER WEEK
     Dates: start: 20150305, end: 20151220
  6. PREDNISONE. [Concomitant]
     Active Substance: PREDNISONE
  7. NORVASE [Concomitant]
  8. ATARAX [Concomitant]
     Active Substance: HYDROXYZINE\HYDROXYZINE HYDROCHLORIDE
  9. PURINUHUL [Concomitant]

REACTIONS (3)
  - Interstitial lung disease [None]
  - Traumatic lung injury [None]
  - Cardiac failure congestive [None]
